FAERS Safety Report 4449732-X (Version None)
Quarter: 2004Q3

REPORT INFORMATION
  Report Type: 
  Country: None (occurrence: None)
  Receive Date: 20040913
  Receipt Date: 20040909
  Transmission Date: 20050211
  Serious: Yes (Hospitalization, Disabling)
  Sender: FDA-Public Use
  Company Number: 2004-09-0032

PATIENT
  Age: 17 Year
  Sex: Female

DRUGS (8)
  1. INTRON A [Suspect]
     Indication: MALIGNANT MELANOMA
     Dosage: 10 MIU* SUBCUTANEOUS
     Route: 058
     Dates: start: 20040223, end: 20040323
  2. INTRON A [Suspect]
     Indication: MALIGNANT MELANOMA
     Dosage: 10 MIU* SUBCUTANEOUS
     Route: 058
     Dates: start: 20040101, end: 20040602
  3. INTRON A [Suspect]
     Indication: MALIGNANT MELANOMA
     Dosage: 10 MIU* SUBCUTANEOUS
     Route: 058
     Dates: start: 20040324, end: 20040602
  4. IRON [Concomitant]
  5. METOCLOPRAMIDE [Concomitant]
  6. ZOPICLONE [Concomitant]
  7. LEVONORGESTREL AND ETHINYL ESTRADIOL [Concomitant]
  8. GRANISETRON [Concomitant]

REACTIONS (5)
  - ANXIETY [None]
  - APHASIA [None]
  - DEPRESSION [None]
  - FAECAL INCONTINENCE [None]
  - URINARY INCONTINENCE [None]
